FAERS Safety Report 7257192-9 (Version None)
Quarter: 2011Q1

REPORT INFORMATION
  Report Type: 
  Country: None (occurrence: None)
  Receive Date: 20110129
  Receipt Date: 20100628
  Transmission Date: 20110831
  Serious: No
  Sender: FDA-Public Use
  Company Number: US-ABBOTT-10P-163-0654074-00

PATIENT
  Age: 34 Year
  Sex: Female

DRUGS (9)
  1. MERCAPTOPURINE [Concomitant]
     Indication: AUTOIMMUNE DISORDER
  2. ASA [Concomitant]
     Indication: CROHN'S DISEASE
  3. CELEXA [Concomitant]
     Indication: DEPRESSION
  4. PENTASA [Concomitant]
     Indication: PRODUCT USED FOR UNKNOWN INDICATION
     Dosage: CONTROLLED RELEASE
  5. XANAX [Concomitant]
     Indication: ANXIETY
  6. ANTI-DIARRHEAL [Concomitant]
     Indication: PRODUCT USED FOR UNKNOWN INDICATION
  7. HUMIRA [Suspect]
     Indication: CROHN'S DISEASE
     Dates: start: 20100401
  8. MULTI-VITAMIN [Concomitant]
     Indication: PRODUCT USED FOR UNKNOWN INDICATION
  9. LOMOTIL [Concomitant]
     Indication: PRODUCT USED FOR UNKNOWN INDICATION
     Dosage: 3 X DAY

REACTIONS (1)
  - INJECTION SITE PAIN [None]
